FAERS Safety Report 8793792 (Version 2)
Quarter: 2012Q4

REPORT INFORMATION
  Report Type: 
  Country: JP (occurrence: JP)
  Receive Date: 20120917
  Receipt Date: 20121019
  Transmission Date: 20130627
  Serious: No
  Sender: FDA-Public Use
  Company Number: PHHY2012JP080102

PATIENT
  Age: 88 Year
  Sex: Female

DRUGS (4)
  1. EXELON PATCH [Suspect]
     Indication: DEMENTIA ALZHEIMER^S TYPE
     Dosage: 4.5 mg, Daily
     Route: 062
     Dates: start: 20120801, end: 20120811
  2. EXELON PATCH [Suspect]
     Dosage: 4.5 mg, Daily
     Route: 062
     Dates: start: 20120831, end: 20120911
  3. PAZEADIN R [Concomitant]
     Indication: HYPERTENSION
     Dosage: 200 mg, UNK
     Route: 048
     Dates: start: 19970818
  4. MENIETOL [Concomitant]
     Indication: DIZZINESS
     Dosage: 5 mg, UNK
     Route: 048
     Dates: start: 20080116

REACTIONS (4)
  - Pain in extremity [Recovered/Resolved]
  - Back pain [Recovered/Resolved]
  - Abasia [Unknown]
  - Malaise [Unknown]
